FAERS Safety Report 5858946-3 (Version None)
Quarter: 2008Q3

REPORT INFORMATION
  Report Type: 
  Country: None (occurrence: None)
  Receive Date: 20080825
  Receipt Date: 20080814
  Transmission Date: 20090109
  Serious: Yes (Death, Other)
  Sender: FDA-Public Use
  Company Number: 2008SP012506

PATIENT
  Age: 77 Year
  Sex: Male

DRUGS (2)
  1. MIRALAX [Suspect]
     Indication: CONSTIPATION
     Dosage: 17 GM; ONCE;
     Dates: start: 20080601
  2. HEART MEDICATION [Concomitant]

REACTIONS (3)
  - ABNORMAL DREAMS [None]
  - ASPIRATION [None]
  - VOMITING [None]
